FAERS Safety Report 9200642 (Version 1)
Quarter: 2013Q1

REPORT INFORMATION
  Report Type: Spontaneous
  Country: GB (occurrence: GB)
  Receive Date: 20130330
  Receipt Date: 20130330
  Transmission Date: 20140127
  Serious: Yes (Death, Life-Threatening)
  Sender: FDA-Public Use
  Company Number: GB-PFIZER INC-2006121183

PATIENT
  Age: 26 Year
  Sex: Female

DRUGS (1)
  1. IBUPROFEN [Suspect]
     Dosage: 105MG 1/1 TOTAL
     Route: 048

REACTIONS (8)
  - Intentional overdose [Fatal]
  - Cardiac arrest [Unknown]
  - Fall [Unknown]
  - Haemodynamic instability [Unknown]
  - Hypotension [Unknown]
  - Metabolic acidosis [Unknown]
  - Myocardial ischaemia [Unknown]
  - Loss of consciousness [Unknown]
